FAERS Safety Report 7007088-2 (Version None)
Quarter: 2010Q3

REPORT INFORMATION
  Report Type: 
  Country: None (occurrence: None)
  Receive Date: 20100922
  Receipt Date: 20100915
  Transmission Date: 20110219
  Serious: Yes (Hospitalization)
  Sender: FDA-Public Use
  Company Number: FR-TYCO HEALTHCARE/MALLINCKRODT-T201001584

PATIENT
  Age: 43 Year
  Sex: Female

DRUGS (2)
  1. OPTIJECT [Suspect]
     Indication: COMPUTERISED TOMOGRAM
     Dosage: 100 ML, SINGLE
     Route: 042
     Dates: start: 20100607, end: 20100607
  2. GARDENAL                           /00023201/ [Concomitant]
     Indication: EPILEPSY
     Route: 065

REACTIONS (2)
  - ANGIOEDEMA [None]
  - TYPE IV HYPERSENSITIVITY REACTION [None]
